FAERS Safety Report 10227140 (Version 1)
Quarter: 2014Q2

REPORT INFORMATION
  Report Type: Spontaneous
  Country: US (occurrence: None)
  Receive Date: 20140609
  Receipt Date: 20140609
  Transmission Date: 20141212
  Serious: Yes (Hospitalization)
  Sender: FDA-Public Use
  Company Number: None

PATIENT
  Age: 65 Year
  Sex: Male

DRUGS (1)
  1. TARGRETIN [Suspect]
     Indication: MYCOSIS FUNGOIDES
     Route: 048
     Dates: start: 20140404, end: 20140430

REACTIONS (6)
  - Vomiting [None]
  - Aspiration [None]
  - Thyroid disorder [None]
  - Body temperature decreased [None]
  - Weight decreased [None]
  - Gait disturbance [None]
